FAERS Safety Report 7145780-X (Version None)
Quarter: 2010Q4

REPORT INFORMATION
  Report Type: 
  Country: None (occurrence: None)
  Receive Date: 20101208
  Receipt Date: 20101124
  Transmission Date: 20110411
  Serious: Yes (Death, Congenital Anomaly)
  Sender: FDA-Public Use
  Company Number: A0851709A

PATIENT
  Sex: Male

DRUGS (10)
  1. PAXIL CR [Suspect]
     Indication: DEPRESSION
     Dosage: 12.5MG TWICE PER DAY
     Dates: start: 20040530, end: 20050325
  2. PAXIL [Suspect]
     Indication: DEPRESSION
     Dosage: 12.5MG TWICE PER DAY
     Dates: start: 20040624, end: 20050919
  3. LEVAQUIN [Concomitant]
  4. PROMETHAZINE [Concomitant]
  5. ALBUTEROL [Concomitant]
  6. VITAMIN AND MINERAL PRENATAL SUPPLEMENT W/ FOLIC ACID CAP [Concomitant]
  7. BUPROPION HCL [Concomitant]
  8. ZITHROMAX [Concomitant]
  9. PREDNISONE [Concomitant]
  10. BIAXIN [Concomitant]

REACTIONS (6)
  - CARDIO-RESPIRATORY ARREST [None]
  - DRUG EXPOSURE DURING PREGNANCY [None]
  - DUCTUS ARTERIOSUS PREMATURE CLOSURE [None]
  - LUNG DISORDER [None]
  - PULMONARY HYPOPLASIA [None]
  - RIGHT VENTRICULAR HYPERTROPHY [None]
